FAERS Safety Report 18970665 (Version 1)
Quarter: 2021Q1

REPORT INFORMATION
  Report Type: Spontaneous
  Country: MX (occurrence: MX)
  Receive Date: 20210305
  Receipt Date: 20210305
  Transmission Date: 20210420
  Serious: Yes (Death, Hospitalization, Other)
  Sender: FDA-Public Use
  Company Number: MX-IPCA LABORATORIES LIMITED-IPC-2021-MX-000491

PATIENT

DRUGS (11)
  1. CHLOROQUINE. [Suspect]
     Active Substance: CHLOROQUINE
     Indication: COVID-19
     Dosage: 500 MILLIGRAM, BID
     Route: 065
  2. NIFEDIPINE. [Concomitant]
     Active Substance: NIFEDIPINE
     Indication: HYPERTENSION
     Dosage: 30 MILLIGRAM, BID
     Route: 065
  3. PREDNISONE. [Concomitant]
     Active Substance: PREDNISONE
     Indication: IMMUNOSUPPRESSION
     Dosage: 25 MILLIGRAM, QD
     Route: 065
  4. CHLOROQUINE. [Suspect]
     Active Substance: CHLOROQUINE
     Dosage: 500 MILLIGRAM, QD
     Route: 065
  5. AZITHROMYCIN ANHYDROUS. [Suspect]
     Active Substance: AZITHROMYCIN ANHYDROUS
     Indication: COVID-19
     Dosage: 500 MILLIGRAM, QD
     Route: 065
  6. MYCOPHENOLIC ACID. [Concomitant]
     Active Substance: MYCOPHENOLIC ACID
     Indication: IMMUNOSUPPRESSION
     Dosage: 500 MILLIGRAM, BID
     Route: 065
  7. AZITHROMYCIN ANHYDROUS. [Suspect]
     Active Substance: AZITHROMYCIN ANHYDROUS
     Dosage: 250 MILLIGRAM, QD
     Route: 065
  8. CALCIUM CARBONATE. [Concomitant]
     Active Substance: CALCIUM CARBONATE
     Indication: PRODUCT USED FOR UNKNOWN INDICATION
     Dosage: 4 GRAM, QD
     Route: 065
  9. TACROLIMUS. [Concomitant]
     Active Substance: TACROLIMUS
     Indication: IMMUNOSUPPRESSION
     Dosage: 1 MILLIGRAM, BID
     Route: 065
  10. METOPROLOL. [Concomitant]
     Active Substance: METOPROLOL
     Indication: HYPERTENSION
     Dosage: 100 MILLIGRAM, BID
     Route: 065
  11. CALCITRIOL. [Concomitant]
     Active Substance: CALCITRIOL
     Indication: PRODUCT USED FOR UNKNOWN INDICATION
     Dosage: 0.25 MICROGRAM, QD
     Route: 065

REACTIONS (2)
  - Cardiac arrest [Fatal]
  - Tachycardia [Fatal]
